FAERS Safety Report 8503995-X (Version None)
Quarter: 2012Q3

REPORT INFORMATION
  Report Type: 
  Country: None (occurrence: None)
  Receive Date: 20120711
  Receipt Date: 20120706
  Transmission Date: 20120928
  Serious: Yes (Hospitalization)
  Sender: FDA-Public Use
  Company Number: US-ACTELION-A-NJ2012-67830

PATIENT

DRUGS (3)
  1. HYPNOTICS AND SEDATIVES [Suspect]
  2. TRACLEER [Suspect]
     Indication: PULMONARY ARTERIAL HYPERTENSION
     Dosage: UNK
     Route: 048
     Dates: start: 20100414
  3. DIURETICS [Concomitant]

REACTIONS (5)
  - POLYP [None]
  - BLOOD GLUCOSE INCREASED [None]
  - COLONOSCOPY [None]
  - HEART RATE INCREASED [None]
  - ADVERSE DRUG REACTION [None]
